FAERS Safety Report 18274991 (Version 1)
Quarter: 2020Q3

REPORT INFORMATION
  Report Type: Spontaneous
  Country: DE (occurrence: DE)
  Receive Date: 20200917
  Receipt Date: 20200917
  Transmission Date: 20201103
  Serious: Yes (Hospitalization, Other)
  Sender: FDA-Public Use
  Company Number: DE-BIOGEN-2020BI00921801

PATIENT
  Age: 55 Year
  Sex: Male

DRUGS (2)
  1. LEUSTATIN [Suspect]
     Active Substance: CLADRIBINE
     Indication: MULTIPLE SCLEROSIS RELAPSE
     Dosage: 90 MILLIGRAM CYCLICAL
     Route: 065
     Dates: start: 20200310
  2. TECFIDERA [Suspect]
     Active Substance: DIMETHYL FUMARATE
     Indication: MULTIPLE SCLEROSIS
     Route: 065

REACTIONS (5)
  - Lymphopenia [Recovered/Resolved]
  - Product use in unapproved indication [Unknown]
  - Superinfection bacterial [Recovered/Resolved]
  - Off label use [Unknown]
  - COVID-19 pneumonia [Recovered/Resolved]
